FAERS Safety Report 9994496 (Version 2)
Quarter: 2015Q2

REPORT INFORMATION
  Report Type: Spontaneous
  Country: US (occurrence: US)
  Receive Date: 20140311
  Receipt Date: 20150605
  Transmission Date: 20150821
  Serious: Yes (Hospitalization)
  Sender: FDA-Public Use
  Company Number: US-BIOGENIDEC-2014BI019635

PATIENT
  Sex: Female

DRUGS (14)
  1. LISINOPRIL-HYDROCHLOROTHIAZIDE, [Concomitant]
  2. SYMBICORT [Concomitant]
     Active Substance: BUDESONIDE\FORMOTEROL FUMARATE DIHYDRATE
  3. CELEBREX [Concomitant]
     Active Substance: CELECOXIB
  4. LOW DOSE ASPIRIN [Concomitant]
     Active Substance: ASPIRIN
  5. TECFIDERA [Suspect]
     Active Substance: DIMETHYL FUMARATE
     Indication: MULTIPLE SCLEROSIS
     Route: 048
     Dates: start: 20140211
  6. OMEPRAZOLE. [Concomitant]
     Active Substance: OMEPRAZOLE
  7. CENTRUM SILVER ADULT 50+ [Concomitant]
  8. DULOXETINE HCI [Concomitant]
  9. TRAMADOL HYDROCHLORIDE. [Concomitant]
     Active Substance: TRAMADOL HYDROCHLORIDE
  10. TRAZODONE [Concomitant]
     Active Substance: TRAZODONE HYDROCHLORIDE
  11. BUSPIRONE [Concomitant]
     Active Substance: BUSPIRONE HYDROCHLORIDE
  12. DIVALPROEX SODIUM ER [Concomitant]
     Active Substance: DIVALPROEX SODIUM
  13. TEMAZEPAM. [Concomitant]
     Active Substance: TEMAZEPAM
  14. PROVENTIL HFA [Concomitant]
     Active Substance: ALBUTEROL SULFATE

REACTIONS (2)
  - Meningioma [Not Recovered/Not Resolved]
  - Post procedural complication [Not Recovered/Not Resolved]
